FAERS Safety Report 15090578 (Version 3)
Quarter: 2019Q1

REPORT INFORMATION
  Report Type: Spontaneous
  Country: US (occurrence: US)
  Receive Date: 20180629
  Receipt Date: 20190122
  Transmission Date: 20190417
  Serious: No
  Sender: FDA-Public Use
  Company Number: US-PFIZER INC-2018264406

PATIENT
  Age: 42 Year
  Sex: Male

DRUGS (2)
  1. DEPO-TESTOSTERONE [Suspect]
     Active Substance: TESTOSTERONE CYPIONATE
     Dosage: 125 MG, WEEKLY (125MG IM WEEKLY)
     Route: 030
  2. DEPO-TESTOSTERONE [Suspect]
     Active Substance: TESTOSTERONE CYPIONATE
     Indication: SEXUAL DYSFUNCTION
     Dosage: 100 MG, WEEKLY (100MG IM WEEKLY)
     Route: 030

REACTIONS (3)
  - Product use in unapproved indication [Unknown]
  - Polycythaemia [Unknown]
  - Haematocrit increased [Unknown]
